FAERS Safety Report 7805594-1 (Version None)
Quarter: 2011Q4

REPORT INFORMATION
  Report Type: 
  Country: None (occurrence: None)
  Receive Date: 20111010
  Receipt Date: 20110928
  Transmission Date: 20120403
  Serious: Yes (Other)
  Sender: FDA-Public Use
  Company Number: US-ASTRAZENECA-2011SE58909

PATIENT
  Sex: Male

DRUGS (12)
  1. LISINOPRIL [Suspect]
     Route: 048
  2. FINASTERIDE [Suspect]
     Route: 065
  3. AMLODIPINE BESYLATE [Suspect]
     Route: 065
  4. TERAZOSIN HCL [Suspect]
     Route: 065
  5. SIMVASTATIN [Suspect]
     Route: 065
  6. FLAX SEED [Suspect]
     Route: 065
  7. SINGULAIR [Suspect]
     Route: 065
  8. VITAMIN E [Suspect]
     Route: 065
  9. VITAMIN D [Suspect]
     Route: 065
  10. OMEPRAZOLE [Suspect]
     Route: 048
  11. SALSALATE [Suspect]
     Route: 065
  12. FISH OIL [Suspect]
     Route: 065

REACTIONS (2)
  - CATARACT [None]
  - DYSURIA [None]
